FAERS Safety Report 5852054-3 (Version None)
Quarter: 2008Q3

REPORT INFORMATION
  Report Type: 
  Country: None (occurrence: None)
  Receive Date: 20080820
  Receipt Date: 20080820
  Transmission Date: 20090109
  Serious: Yes (Other)
  Sender: FDA-Public Use
  Company Number: None

PATIENT
  Sex: Male

DRUGS (5)
  1. SEROQUEL [Suspect]
     Indication: MAJOR DEPRESSION
     Dosage: 200MG HS PO
     Route: 048
     Dates: start: 20070801, end: 20080501
  2. SEROQUEL [Suspect]
     Indication: PANIC DISORDER
     Dosage: 200MG HS PO
     Route: 048
     Dates: start: 20070801, end: 20080501
  3. SEROQUEL [Suspect]
     Indication: PSYCHOTIC DISORDER
     Dosage: 200MG HS PO
     Route: 048
     Dates: start: 20070801, end: 20080501
  4. ZOLOFT [Concomitant]
  5. KLONOPIN [Concomitant]

REACTIONS (2)
  - GLYCOSYLATED HAEMOGLOBIN INCREASED [None]
  - HYPERGLYCAEMIA [None]
